FAERS Safety Report 25690685 (Version 3)
Quarter: 2025Q4

REPORT INFORMATION
  Report Type: Report from Study
  Country: US (occurrence: US)
  Receive Date: 20250818
  Receipt Date: 20251027
  Transmission Date: 20260118
  Serious: Yes (Hospitalization, Other)
  Sender: AMGEN
  Company Number: US-AMGEN-USASL2025124315

PATIENT
  Age: 64 Year
  Sex: Female

DRUGS (2)
  1. LUMAKRAS [Suspect]
     Active Substance: SOTORASIB
     Indication: Lung neoplasm malignant
     Dosage: 960 MILLIGRAM, QD
     Route: 048
     Dates: start: 20250612, end: 2025
  2. LUMAKRAS [Suspect]
     Active Substance: SOTORASIB
     Dosage: 640 MILLIGRAM, QD, (2 TABLETS)
     Route: 048
     Dates: start: 2025

REACTIONS (11)
  - Blood glucose decreased [Unknown]
  - Nausea [Unknown]
  - Diarrhoea [Unknown]
  - Blood potassium decreased [Unknown]
  - Dehydration [Unknown]
  - Peripheral swelling [Unknown]
  - Constipation [Unknown]
  - Fatigue [Unknown]
  - Off label use [Unknown]
  - Fall [Unknown]
  - Clavicle fracture [Unknown]

NARRATIVE: CASE EVENT DATE: 20250101
